FAERS Safety Report 9303805 (Version 5)
Quarter: 2013Q3

REPORT INFORMATION
  Report Type: Report from Study
  Country: CO (occurrence: CO)
  Receive Date: 20130522
  Receipt Date: 20130822
  Transmission Date: 20140515
  Serious: Yes (Hospitalization)
  Sender: FDA-Public Use
  Company Number: CO-GLAXOSMITHKLINE-B0889603A

PATIENT
  Age: 59 Year
  Sex: Female
  Weight: 37 kg

DRUGS (9)
  1. FLUTICASONE FUROATE + VILANTEROL TRIFENATATE [Suspect]
     Indication: CHRONIC OBSTRUCTIVE PULMONARY DISEASE
     Dates: start: 20130204, end: 20130323
  2. FLUTICASONE FUROATE + VILANTEROL TRIFENATATE [Suspect]
     Dates: start: 20130327
  3. LOSARTAN [Concomitant]
     Indication: HYPERTENSION
     Dosage: 50MG PER DAY
     Route: 048
     Dates: start: 20121226
  4. HYDROCHLOROTHIAZIDE [Concomitant]
     Indication: HYPERTENSION
     Dosage: 25MG PER DAY
     Route: 048
     Dates: start: 20121226
  5. LOVASTATIN [Concomitant]
     Indication: DYSLIPIDAEMIA
     Dosage: 20MG PER DAY
     Route: 048
     Dates: start: 20121226
  6. LEVOTHYROXINE [Concomitant]
     Indication: HYPOTHYROIDISM
     Dosage: 150MCG PER DAY
     Route: 048
     Dates: start: 2007
  7. ACETAMINOPHEN [Concomitant]
     Indication: BACK PAIN
     Dosage: 4500MG CUMULATIVE DOSE
     Route: 048
     Dates: start: 20130228, end: 20130302
  8. CALCIUM + VITAMIN D [Concomitant]
     Indication: OSTEOPOROSIS PROPHYLAXIS
     Dosage: 600MG PER DAY
     Route: 048
     Dates: start: 20130301
  9. OMEPRAZOLE [Concomitant]
     Indication: GASTRITIS PROPHYLAXIS
     Dosage: 20MG PER DAY
     Route: 048
     Dates: start: 20130324, end: 20130422

REACTIONS (2)
  - Pneumonia [Recovered/Resolved]
  - Chronic obstructive pulmonary disease [Recovered/Resolved]
